FAERS Safety Report 6274374-3 (Version None)
Quarter: 2009Q3

REPORT INFORMATION
  Report Type: 
  Country: None (occurrence: None)
  Receive Date: 20090720
  Receipt Date: 20090707
  Transmission Date: 20100115
  Serious: Yes (Death)
  Sender: FDA-Public Use
  Company Number: GR-MYLANLABS-2009S1011947

PATIENT
  Age: 37 Year
  Sex: Female

DRUGS (5)
  1. AMITRIPTYLINE [Suspect]
  2. NOZINAN [Concomitant]
     Dosage: LARGE AMOUNT OF PILLS FOUND AT PATIENT'S HOUSE
     Route: 048
  3. MINITRAN [Concomitant]
     Dosage: LARGE AMOUNT OF PILLS FOUND AT PATIENT'S HOUSE
  4. DEPON [Concomitant]
     Dosage: HALF EMPTY CONTAINERS OF PARACETAMOL FOUND AT PATIENT'S HOUSE
  5. PERPHENAZINE [Concomitant]

REACTIONS (2)
  - ASPHYXIA [None]
  - OVERDOSE [None]
